FAERS Safety Report 4552656-0 (Version None)
Quarter: 2005Q1

REPORT INFORMATION
  Report Type: 
  Country: None (occurrence: None)
  Receive Date: 20050114
  Receipt Date: 20050107
  Transmission Date: 20050727
  Serious: Yes (Death)
  Sender: FDA-Public Use
  Company Number: PHRM2005FR00483

PATIENT
  Age: 78 Year
  Sex: Female

DRUGS (10)
  1. GLEEVEC [Suspect]
     Indication: CHRONIC MYELOID LEUKAEMIA
     Dosage: 300 MG PER DAY
     Route: 048
  2. PRAVASTATIN [Concomitant]
     Dosage: 20 MG, QD
     Route: 048
  3. NISIS [Concomitant]
     Dosage: 80 MG, QD
     Route: 048
  4. NITROGLYCERIN [Concomitant]
     Dosage: AS NEEDED 2 DF BID
  5. DI-ANTALVIC [Concomitant]
     Dosage: AS NEEDED
  6. CORVASAL [Concomitant]
     Dosage: 12 MG DAILY
     Route: 048
  7. RENITEC                                 /NET/ [Concomitant]
     Dosage: 20 MG, QD
     Route: 048
  8. LASILIX [Concomitant]
     Dosage: 40 MG, QD
     Route: 048
  9. ASPEGIC                                 /FRA/ [Concomitant]
     Dosage: 250 MG, QD
     Route: 048
  10. CORDARONE [Concomitant]
     Dosage: 200 MG, QD
     Route: 048

REACTIONS (8)
  - BRAIN CANCER METASTATIC [None]
  - COMA [None]
  - HEMIPLEGIA [None]
  - HYPOKINESIA [None]
  - LYMPHADENOPATHY [None]
  - MALIGNANT MELANOMA [None]
  - METASTASES TO LIVER [None]
  - METASTASES TO LUNG [None]
